FAERS Safety Report 9057575 (Version 1)
Quarter: 2013Q1

REPORT INFORMATION
  Report Type: Spontaneous
  Country: FR (occurrence: FR)
  Receive Date: 20130204
  Receipt Date: 20130204
  Transmission Date: 20140127
  Serious: Yes (Life-Threatening, Hospitalization)
  Sender: FDA-Public Use
  Company Number: FR-PFIZER INC-2013037646

PATIENT
  Age: 41 Year
  Sex: Male

DRUGS (4)
  1. FLUOROURACILE PFIZER [Suspect]
     Indication: COLORECTAL CANCER
     Dosage: ONE BOLUS OF 700 MG
     Route: 042
     Dates: start: 20121127, end: 20121127
  2. FLUOROURACILE PFIZER [Suspect]
     Dosage: 4350 MG BY INFUSION PUMP FOR 46 HOURS
     Route: 042
     Dates: start: 20121127, end: 20121128
  3. OXALIPLATINE [Suspect]
     Indication: COLORECTAL CANCER
     Dosage: ONE BOLUS OF 155 MG
     Route: 042
     Dates: start: 20121127, end: 20121127
  4. FOLINIC ACID [Concomitant]
     Indication: COLORECTAL CANCER
     Dosage: UNK
     Dates: start: 20121127

REACTIONS (2)
  - Arteriospasm coronary [Unknown]
  - Ventricular dysfunction [Not Recovered/Not Resolved]
